FAERS Safety Report 6085690-2 (Version None)
Quarter: 2009Q1

REPORT INFORMATION
  Report Type: 
  Country: None (occurrence: None)
  Receive Date: 20090220
  Receipt Date: 20090210
  Transmission Date: 20090719
  Serious: Yes (Hospitalization, Other)
  Sender: FDA-Public Use
  Company Number: GB-JNJFOC-20090202741

PATIENT
  Age: 36 Year
  Sex: Female
  Weight: 87 kg

DRUGS (11)
  1. REMICADE [Suspect]
     Indication: RHEUMATOID ARTHRITIS
     Route: 042
     Dates: start: 20021119, end: 20040127
  2. METHOTREXATE [Concomitant]
  3. PREDNISOLONE [Concomitant]
  4. ATENOLOL [Concomitant]
  5. BENDROFLUAZIDE [Concomitant]
  6. CELECOXIB [Concomitant]
  7. CODEINE PHOSPHATE [Concomitant]
  8. FOLIC ACID [Concomitant]
  9. HYDROXYCHLOROQUINE SULFATE [Concomitant]
  10. LANSOPRAZOLE [Concomitant]
  11. ACETAMINOPHEN [Concomitant]

REACTIONS (1)
  - JOINT DISLOCATION [None]
